FAERS Safety Report 20590679 (Version 1)
Quarter: 2022Q1

REPORT INFORMATION
  Report Type: Spontaneous
  Country: US (occurrence: US)
  Receive Date: 20220314
  Receipt Date: 20220314
  Transmission Date: 20220423
  Serious: No
  Sender: FDA-Public Use
  Company Number: US-BoehringerIngelheim-2022-BI-159128

PATIENT
  Age: 87 Year
  Sex: Male

DRUGS (1)
  1. OFEV [Suspect]
     Active Substance: NINTEDANIB
     Indication: Product used for unknown indication
     Route: 048
     Dates: start: 20220225, end: 20220311

REACTIONS (1)
  - Vertigo [Recovering/Resolving]

NARRATIVE: CASE EVENT DATE: 20220225
